FAERS Safety Report 11336025 (Version 2)
Quarter: 2015Q3

REPORT INFORMATION
  Report Type: Spontaneous
  Country: JP (occurrence: JP)
  Receive Date: 20150804
  Receipt Date: 20150825
  Transmission Date: 20151125
  Serious: Yes (Death, Other)
  Sender: FDA-Public Use
  Company Number: JP-009507513-1508JPN000218

PATIENT
  Age: 64 Year
  Sex: Male
  Weight: 53.8 kg

DRUGS (9)
  1. ZOLINZA [Suspect]
     Active Substance: VORINOSTAT
     Indication: MYCOSIS FUNGOIDES
     Dosage: 200 MG, QD
     Route: 048
     Dates: start: 20150723, end: 20150724
  2. PLATELETS [Concomitant]
     Active Substance: HUMAN PLATELET, ALLOGENIC
     Dosage: UNK
     Route: 051
     Dates: start: 20150203, end: 20150724
  3. MAGMITT [Concomitant]
     Active Substance: MAGNESIUM OXIDE
     Dosage: 660 MG, THREE TIMES/DAY
     Route: 048
     Dates: start: 20150122, end: 20150725
  4. PREDONINE [Concomitant]
     Active Substance: PREDNISOLONE\PREDNISOLONE ACETATE\PREDNISOLONE SODIUM SUCCINATE
     Dosage: 10 MG, DAILY
     Route: 048
     Dates: start: 20150122, end: 20150725
  5. FAMOTIDINE. [Concomitant]
     Active Substance: FAMOTIDINE
     Dosage: 20 MG, TWO TIMES DAILY
     Route: 048
     Dates: start: 20150122, end: 20150725
  6. BAKTAR [Concomitant]
     Active Substance: SULFAMETHOXAZOLE\TRIMETHOPRIM
     Dosage: 1 DF, DAILY
     Route: 048
     Dates: start: 20150122, end: 20150725
  7. BLOOD CELLS, RED [Concomitant]
     Active Substance: HUMAN BLOOD CELLS
     Dosage: UNK
     Route: 051
     Dates: start: 20150203, end: 20150724
  8. ZADITEN [Concomitant]
     Active Substance: KETOTIFEN FUMARATE
     Dosage: 1 MG, QD
     Route: 048
     Dates: start: 20150122, end: 20150725
  9. NORVASC [Concomitant]
     Active Substance: AMLODIPINE BESYLATE
     Dosage: 5 MG, PER DAY
     Route: 048
     Dates: start: 20150122, end: 20150725

REACTIONS (1)
  - Mycosis fungoides [Fatal]

NARRATIVE: CASE EVENT DATE: 20150725
